FAERS Safety Report 19080692 (Version 1)
Quarter: 2021Q1

REPORT INFORMATION
  Report Type: Spontaneous
  Country: US (occurrence: US)
  Receive Date: 20210331
  Receipt Date: 20210331
  Transmission Date: 20210420
  Serious: No
  Sender: FDA-Public Use
  Company Number: US-ORGANON-O2103USA001947

PATIENT
  Age: 24 Year
  Sex: Female

DRUGS (2)
  1. ETONOGESTREL (+) ETHINYL ESTRADIOL [Suspect]
     Active Substance: ETHINYL ESTRADIOL\ETONOGESTREL
     Dosage: 1 RING
     Dates: start: 202102, end: 20210310
  2. ETONOGESTREL (+) ETHINYL ESTRADIOL [Suspect]
     Active Substance: ETHINYL ESTRADIOL\ETONOGESTREL
     Dosage: 1 RING (COUPLE OF YEARS AGO)
     Route: 067

REACTIONS (7)
  - Abnormal withdrawal bleeding [Not Recovered/Not Resolved]
  - Product use issue [Unknown]
  - Metrorrhagia [Unknown]
  - Nervousness [Unknown]
  - Incorrect product administration duration [Unknown]
  - Maternal exposure during breast feeding [Unknown]
  - Infection [Unknown]

NARRATIVE: CASE EVENT DATE: 202102
